FAERS Safety Report 5109170-3 (Version None)
Quarter: 2006Q3

REPORT INFORMATION
  Report Type: 
  Country: None (occurrence: None)
  Receive Date: 20060920
  Receipt Date: 20060914
  Transmission Date: 20061208
  Serious: Yes (Hospitalization)
  Sender: FDA-Public Use
  Company Number: DE-ROCHE-462907

PATIENT
  Age: 54 Year
  Sex: Male

DRUGS (2)
  1. MYCOPHENOLATE MOFETIL [Suspect]
     Route: 065
     Dates: start: 20060615
  2. TACROLIMUS [Suspect]
     Route: 065
     Dates: start: 20060615

REACTIONS (2)
  - BILE DUCT STENOSIS [None]
  - PYREXIA [None]
